FAERS Safety Report 21690968 (Version 2)
Quarter: 2022Q4

REPORT INFORMATION
  Report Type: Report from Study
  Country: US (occurrence: US)
  Receive Date: 20221207
  Receipt Date: 20221219
  Transmission Date: 20230112
  Serious: No
  Sender: FDA-Public Use
  Company Number: US-ABBVIE-4224753

PATIENT
  Sex: Female

DRUGS (1)
  1. IMBRUVICA [Suspect]
     Active Substance: IBRUTINIB
     Indication: Chronic lymphocytic leukaemia
     Route: 048
     Dates: start: 20221116

REACTIONS (7)
  - Lymphadenopathy [Unknown]
  - Rash pruritic [Recovering/Resolving]
  - Splenomegaly [Unknown]
  - Petechiae [Recovering/Resolving]
  - Platelet count decreased [Unknown]
  - Petechiae [Recovered/Resolved]
  - Rash pruritic [Recovered/Resolved]
